FAERS Safety Report 21995819 (Version 1)
Quarter: 2023Q1

REPORT INFORMATION
  Report Type: Spontaneous
  Country: US (occurrence: US)
  Receive Date: 20230215
  Receipt Date: 20230215
  Transmission Date: 20230418
  Serious: Yes (Hospitalization)
  Sender: FDA-Public Use
  Company Number: US-BIOVITRUM-2023US02238

PATIENT
  Age: 0 Year
  Sex: Female

DRUGS (3)
  1. SYNAGIS [Suspect]
     Active Substance: PALIVIZUMAB
     Indication: Cardiac failure
     Dosage: 50MG/0.5ML
     Dates: start: 20220812
  2. SYNAGIS [Suspect]
     Active Substance: PALIVIZUMAB
     Indication: Tricuspid valve stenosis
  3. SYNAGIS [Suspect]
     Active Substance: PALIVIZUMAB
     Indication: Ventricular septal defect

REACTIONS (1)
  - COVID-19 [Unknown]

NARRATIVE: CASE EVENT DATE: 20230107
